FAERS Safety Report 16123430 (Version 7)
Quarter: 2021Q4

REPORT INFORMATION
  Report Type: Report from Study
  Country: US (occurrence: US)
  Receive Date: 20190327
  Receipt Date: 20211118
  Transmission Date: 20220303
  Serious: Yes (Hospitalization)
  Sender: FDA-Public Use
  Company Number: US-PFIZER INC-2019067503

PATIENT
  Age: 75 Year
  Sex: Female
  Weight: 56.2 kg

DRUGS (7)
  1. AVELUMAB [Suspect]
     Active Substance: AVELUMAB
     Indication: Ovarian cancer
     Dosage: 800 MG, EVERY 3 WEEKS
     Route: 042
     Dates: start: 20181129, end: 20190110
  2. PACLITAXEL [Suspect]
     Active Substance: PACLITAXEL
     Indication: Ovarian cancer
     Dosage: 232 MG, EVERY 3 WEEKS
     Route: 042
     Dates: start: 20181129, end: 20190110
  3. CARBOPLATIN [Suspect]
     Active Substance: CARBOPLATIN
     Indication: Ovarian cancer
     Dosage: 474 MG, EVERY 3 WEEKS (6 AUC)
     Route: 042
     Dates: start: 20181129, end: 20190110
  4. DEXILANT [Concomitant]
     Active Substance: DEXLANSOPRAZOLE
     Indication: Gastrooesophageal reflux disease
     Dosage: UNK UNK, QD
     Route: 048
  5. LORATADINE [Concomitant]
     Active Substance: LORATADINE
     Indication: Hypersensitivity
     Dosage: UNK UNK, QD
     Route: 048
  6. VITAMIN D3 [Concomitant]
     Active Substance: CHOLECALCIFEROL
     Indication: Vitamin supplementation
     Dosage: UNK UNK, QD
     Route: 048
  7. TYLENOL [Concomitant]
     Active Substance: ACETAMINOPHEN
     Indication: Pain
     Dosage: UNK UNK, PRN
     Route: 048

REACTIONS (1)
  - Pleural effusion [Recovered/Resolved]

NARRATIVE: CASE EVENT DATE: 20190211
